FAERS Safety Report 24563602 (Version 2)
Quarter: 2024Q4

REPORT INFORMATION
  Report Type: Report from Study
  Country: US (occurrence: US)
  Receive Date: 20241030
  Receipt Date: 20241108
  Transmission Date: 20250115
  Serious: No
  Sender: TAIHO ONCOLOGY INC
  Company Number: US-TAIHOP-2024-009765

PATIENT
  Age: 39 Year
  Sex: Female
  Weight: 54.88 kg

DRUGS (1)
  1. LYTGOBI [Suspect]
     Active Substance: FUTIBATINIB
     Indication: Gastric cancer
     Route: 048
     Dates: start: 202408

REACTIONS (2)
  - Platelet count decreased [Not Recovered/Not Resolved]
  - Product use in unapproved indication [Unknown]
